FAERS Safety Report 23880321 (Version 4)
Quarter: 2024Q4

REPORT INFORMATION
  Report Type: Report from Study
  Country: TR (occurrence: TR)
  Receive Date: 20240521
  Receipt Date: 20241130
  Transmission Date: 20250115
  Serious: Yes (Hospitalization, Other)
  Sender: ABBVIE
  Company Number: TR-ABBVIE-5765432

PATIENT
  Age: 74 Year
  Sex: Female

DRUGS (2)
  1. CARBIDOPA\LEVODOPA [Suspect]
     Active Substance: CARBIDOPA\LEVODOPA
     Indication: Parkinson^s disease
     Dosage: MORNING DOSE (ML): 6.00 CONTINUOUS DOSE (ML): 2.00 EXTRA DOSE (ML): 1.00
     Route: 050
     Dates: start: 20230809, end: 20240516
  2. CARBIDOPA\LEVODOPA [Suspect]
     Active Substance: CARBIDOPA\LEVODOPA
     Dosage: MORNING DOSE (ML): 3.00 CONTINUOUS DOSE (ML): 1.00 EXTRA DOSE (ML): 0.50?DOSE REDUCED
     Route: 050
     Dates: start: 20240516, end: 20241122

REACTIONS (5)
  - Epilepsy [Recovered/Resolved]
  - Dysphagia [Recovered/Resolved]
  - Feeding disorder [Recovered/Resolved]
  - Somnolence [Recovered/Resolved]
  - Device dislocation [Not Recovered/Not Resolved]

NARRATIVE: CASE EVENT DATE: 20240301
